FAERS Safety Report 8605407-4 (Version None)
Quarter: 2012Q3

REPORT INFORMATION
  Report Type: 
  Country: None (occurrence: None)
  Receive Date: 20120820
  Receipt Date: 20120809
  Transmission Date: 20120928
  Serious: Yes (Hospitalization, Other)
  Sender: FDA-Public Use
  Company Number: DE-SANOFI-AVENTIS-2012SA009025

PATIENT
  Sex: Male
  Weight: 105 kg

DRUGS (1)
  1. ELIGARD [Suspect]
     Dosage: EVERY THREE MONTHS
     Route: 065
     Dates: start: 20101111

REACTIONS (4)
  - PAIN [None]
  - ABSCESS ORAL [None]
  - DISEASE PROGRESSION [None]
  - DIABETES MELLITUS [None]
